FAERS Safety Report 5750407-5 (Version None)
Quarter: 2008Q2

REPORT INFORMATION
  Report Type: 
  Country: None (occurrence: None)
  Receive Date: 20080523
  Receipt Date: 20080523
  Transmission Date: 20081010
  Serious: Yes (Life-Threatening, Hospitalization)
  Sender: FDA-Public Use
  Company Number: None

PATIENT
  Age: 67 Year
  Weight: 69 kg

DRUGS (2)
  1. WARFARIN SODIUM [Suspect]
     Indication: ATRIAL FIBRILLATION
     Dosage: 3 MG QHS  PO
     Route: 048
     Dates: start: 20061130, end: 20061204
  2. LOVENOX [Suspect]
     Indication: ATRIAL FIBRILLATION
     Dosage: 73 MG Q12H SQ
     Route: 058
     Dates: start: 20061201, end: 20061204

REACTIONS (3)
  - CEREBRAL HAEMORRHAGE [None]
  - EMBOLIC STROKE [None]
  - INTERNATIONAL NORMALISED RATIO INCREASED [None]
